FAERS Safety Report 16285805 (Version 1)
Quarter: 2019Q2

REPORT INFORMATION
  Report Type: Spontaneous
  Country: US (occurrence: US)
  Receive Date: 20190506
  Receipt Date: 20190506
  Transmission Date: 20190711
  Serious: Yes (Hospitalization)
  Sender: FDA-Public Use
  Company Number: None

PATIENT
  Age: 18 Year
  Sex: Female
  Weight: 65 kg

DRUGS (1)
  1. DEPO-PROVERA [Suspect]
     Active Substance: MEDROXYPROGESTERONE ACETATE
     Indication: CONTRACEPTION
     Route: 030
     Dates: start: 20190419, end: 20190419

REACTIONS (4)
  - Musculoskeletal stiffness [None]
  - Headache [None]
  - Vulvovaginal rash [None]
  - Pyrexia [None]

NARRATIVE: CASE EVENT DATE: 20190505
